FAERS Safety Report 6488861-6 (Version None)
Quarter: 2009Q4

REPORT INFORMATION
  Report Type: 
  Country: None (occurrence: None)
  Receive Date: 20091210
  Receipt Date: 20091130
  Transmission Date: 20100525
  Serious: Yes (Other)
  Sender: FDA-Public Use
  Company Number: JP-PFIZER INC-2009304295

PATIENT

DRUGS (3)
  1. GABAPEN [Suspect]
     Indication: PAIN
     Dosage: 900 MG/DAY
     Route: 048
  2. ROHYPNOL [Suspect]
     Dosage: UNK
     Route: 048
  3. MORPHINE HYDROCHLORIDE [Concomitant]
     Dosage: 800 MG, UNK

REACTIONS (2)
  - NEUROLEPTIC MALIGNANT SYNDROME [None]
  - RHABDOMYOLYSIS [None]
